FAERS Safety Report 6481142-6 (Version None)
Quarter: 2009Q4

REPORT INFORMATION
  Report Type: 
  Country: None (occurrence: None)
  Receive Date: 20091203
  Receipt Date: 20091125
  Transmission Date: 20100525
  Serious: Yes (Life-Threatening, Hospitalization)
  Sender: FDA-Public Use
  Company Number: AMI0015925

PATIENT
  Sex: Male

DRUGS (1)
  1. TIMOLOL MALEATE [Suspect]

REACTIONS (1)
  - TOXIC EPIDERMAL NECROLYSIS [None]
